FAERS Safety Report 9256823 (Version 1)
Quarter: 2013Q2

REPORT INFORMATION
  Report Type: Spontaneous
  Country: US (occurrence: US)
  Receive Date: 20130426
  Receipt Date: 20130426
  Transmission Date: 20140414
  Serious: No
  Sender: FDA-Public Use
  Company Number: US-009507513-1304USA014413

PATIENT
  Sex: Female

DRUGS (2)
  1. COZAAR [Suspect]
     Dosage: 25 MG, TID
     Route: 048
  2. LOSARTAN POTASSIUM [Suspect]
     Route: 048

REACTIONS (2)
  - Adverse reaction [Unknown]
  - Hypersensitivity [Unknown]
